FAERS Safety Report 19019963 (Version 1)
Quarter: 2021Q1

REPORT INFORMATION
  Report Type: Spontaneous
  Country: GB (occurrence: GB)
  Receive Date: 20210317
  Receipt Date: 20210317
  Transmission Date: 20210420
  Serious: Yes (Other)
  Sender: FDA-Public Use
  Company Number: GB-ACCORD-219762

PATIENT
  Age: 65 Year
  Sex: Female
  Weight: 82 kg

DRUGS (4)
  1. THALIDOMIDE [Suspect]
     Active Substance: THALIDOMIDE
     Indication: PLASMA CELL MYELOMA
     Dosage: 200MG
     Route: 048
     Dates: start: 20200209, end: 20200301
  2. BORTEZOMIBE [Suspect]
     Active Substance: BORTEZOMIB
     Indication: PLASMA CELL MYELOMA
     Route: 058
     Dates: start: 20210209, end: 20210301
  3. SULFAMETHOXAZOLE/TRIMETHOPRIM [Suspect]
     Active Substance: SULFAMETHOXAZOLE\TRIMETHOPRIM
     Indication: ANTIBIOTIC PROPHYLAXIS
     Dosage: 480MG PROPHYLAXIS
     Route: 048
     Dates: start: 20200117, end: 20200224
  4. ALLOPURINOL. [Suspect]
     Active Substance: ALLOPURINOL
     Indication: CHEMOTHERAPY SIDE EFFECT PROPHYLAXIS
     Route: 048
     Dates: start: 20210117, end: 20210130

REACTIONS (1)
  - Rash erythematous [Recovering/Resolving]

NARRATIVE: CASE EVENT DATE: 20210225
